FAERS Safety Report 24612922 (Version 1)
Quarter: 2024Q4

REPORT INFORMATION
  Report Type: Spontaneous
  Country: US (occurrence: None)
  Receive Date: 20241108
  Receipt Date: 20241108
  Transmission Date: 20250115
  Serious: Yes (Other)
  Sender: Public
  Company Number: None

PATIENT
  Age: 39 Year
  Sex: Female
  Weight: 75.15 kg

DRUGS (2)
  1. LEVOFLOXACIN [Suspect]
     Active Substance: LEVOFLOXACIN
     Dosage: OTHER FREQUENCY : DAILY X 7 DAYS;?
  2. METRONIDAZOLE [Suspect]
     Active Substance: METRONIDAZOLE

REACTIONS (9)
  - Neuralgia [None]
  - Restless legs syndrome [None]
  - Carpal tunnel syndrome [None]
  - Pain in jaw [None]
  - Anxiety [None]
  - Pelvic pain [None]
  - Vulvovaginal pain [None]
  - Vaginal odour [None]
  - Condition aggravated [None]

NARRATIVE: CASE EVENT DATE: 20241101
